FAERS Safety Report 11412264 (Version 1)
Quarter: 2015Q3

REPORT INFORMATION
  Report Type: Spontaneous
  Country: US (occurrence: US)
  Receive Date: 20150824
  Receipt Date: 20150824
  Transmission Date: 20151125
  Serious: Yes (Hospitalization, Other)
  Sender: FDA-Public Use
  Company Number: US-GLAXOSMITHKLINE-US2014GSK010041

PATIENT
  Age: 62 Year
  Sex: Female

DRUGS (4)
  1. SYMBICORT [Concomitant]
     Active Substance: BUDESONIDE\FORMOTEROL FUMARATE DIHYDRATE
  2. SPIRIVA [Concomitant]
     Active Substance: TIOTROPIUM BROMIDE MONOHYDRATE
  3. VENTOLIN [Suspect]
     Active Substance: ALBUTEROL SULFATE
     Indication: BRONCHITIS
     Dosage: 2 PUFF(S), QID
     Route: 055
  4. VENTOLIN [Suspect]
     Active Substance: ALBUTEROL SULFATE
     Indication: DYSPNOEA
     Dosage: UNK

REACTIONS (4)
  - Pneumonia [Recovered/Resolved]
  - Intentional device misuse [Unknown]
  - Influenza [Unknown]
  - Nasopharyngitis [Unknown]

NARRATIVE: CASE EVENT DATE: 20140930
